FAERS Safety Report 7559928-6 (Version None)
Quarter: 2011Q2

REPORT INFORMATION
  Report Type: 
  Country: None (occurrence: None)
  Receive Date: 20110621
  Receipt Date: 20110607
  Transmission Date: 20111010
  Serious: Yes (Disabling)
  Sender: FDA-Public Use
  Company Number: PHHY2011US37242

PATIENT
  Sex: Female
  Weight: 127.44 kg

DRUGS (2)
  1. HYDROCODONE [Concomitant]
     Indication: BACK PAIN
     Dosage: 1 DF, BID,5/500
     Route: 048
     Dates: start: 20060101
  2. VALTURNA [Suspect]
     Indication: HYPERTENSION
     Dosage: 300 MG OF ALISK AND 320 MG OF VALS, QD
     Route: 048
     Dates: start: 20101001, end: 20110218

REACTIONS (2)
  - ANOSMIA [None]
  - AGEUSIA [None]
